FAERS Safety Report 16534100 (Version 1)
Quarter: 2019Q3

REPORT INFORMATION
  Report Type: Report from Study
  Country: None (occurrence: US)
  Receive Date: 20190705
  Receipt Date: 20190705
  Transmission Date: 20191004
  Serious: Yes (Hospitalization)
  Sender: FDA-Public Use
  Company Number: US-ABBVIE-19K-163-2841893-00

PATIENT
  Age: 57 Year
  Sex: Female
  Weight: 79.9 kg

DRUGS (8)
  1. HUMIRA [Suspect]
     Active Substance: ADALIMUMAB
     Indication: PSORIATIC ARTHROPATHY
     Route: 058
     Dates: start: 201901
  2. LEVACORT [Concomitant]
     Indication: PRODUCT USED FOR UNKNOWN INDICATION
  3. MAGNESIUM [Concomitant]
     Active Substance: MAGNESIUM
     Indication: MINERAL SUPPLEMENTATION
  4. NORCO [Concomitant]
     Active Substance: ACETAMINOPHEN\HYDROCODONE BITARTRATE
     Indication: INTERVERTEBRAL DISC DEGENERATION
  5. FOLIC ACID. [Concomitant]
     Active Substance: FOLIC ACID
     Indication: PSORIATIC ARTHROPATHY
  6. METHOTREXATE. [Concomitant]
     Active Substance: METHOTREXATE
     Indication: PSORIATIC ARTHROPATHY
  7. CYCLOBENZAPRINE. [Concomitant]
     Active Substance: CYCLOBENZAPRINE
     Indication: INTERVERTEBRAL DISC DEGENERATION
  8. MAGNESIUM CREAM [Concomitant]
     Indication: MINERAL SUPPLEMENTATION

REACTIONS (8)
  - Injection site haemorrhage [Not Recovered/Not Resolved]
  - Hypokalaemia [Recovered/Resolved]
  - Chest pain [Recovered/Resolved]
  - Eyelid rash [Recovering/Resolving]
  - Wrong technique in product usage process [Unknown]
  - Device issue [Unknown]
  - Hypokalaemia [Recovered/Resolved]
  - Chest discomfort [Recovered/Resolved]

NARRATIVE: CASE EVENT DATE: 201901
